FAERS Safety Report 24897848 (Version 1)
Quarter: 2025Q1

REPORT INFORMATION
  Report Type: Spontaneous
  Country: US (occurrence: US)
  Receive Date: 20250129
  Receipt Date: 20250129
  Transmission Date: 20250409
  Serious: Yes (Other)
  Sender: AMGEN
  Company Number: US-AMGEN-USASP2025013300

PATIENT

DRUGS (3)
  1. EPOETIN ALFA [Suspect]
     Active Substance: ERYTHROPOIETIN
     Indication: Nephrogenic anaemia
     Dosage: UNK, 3 TIMES/WK
     Route: 040
  2. ENALAPRIL [Concomitant]
     Active Substance: ENALAPRIL
  3. CAPTOPRIL [Concomitant]
     Active Substance: CAPTOPRIL

REACTIONS (1)
  - Haematocrit decreased [Unknown]
